FAERS Safety Report 4603153-5 (Version None)
Quarter: 2005Q1

REPORT INFORMATION
  Report Type: 
  Country: None (occurrence: None)
  Receive Date: 20050307
  Receipt Date: 20050222
  Transmission Date: 20050727
  Serious: Yes (Other)
  Sender: FDA-Public Use
  Company Number: 2005-BP-03078YA

PATIENT
  Age: 83 Year
  Sex: Male

DRUGS (3)
  1. HARNAL (TAMSULOSIN) (NR) (TAMSULOSIN HYDROCHLORIDE) [Suspect]
     Indication: BENIGN PROSTATIC HYPERPLASIA
     Dosage: 0.2 MG (NR) (PO
     Route: 048
  2. HARNAL (TAMSULOSIN) (NR) (TAMSULOSIN HYDROCHLORIDE) [Suspect]
     Indication: POLLAKIURIA
     Dosage: 0.2 MG (NR) (PO
     Route: 048
  3. PROPIVERINE HYDROCHLORIDE (PROPIVERINE HYDROCHLORIDE) (UNK) [Concomitant]

REACTIONS (1)
  - INTERSTITIAL LUNG DISEASE [None]
